FAERS Safety Report 10207669 (Version 1)
Quarter: 2014Q2

REPORT INFORMATION
  Report Type: Spontaneous
  Country: US (occurrence: US)
  Receive Date: 20140530
  Receipt Date: 20140530
  Transmission Date: 20141212
  Serious: No
  Sender: FDA-Public Use
  Company Number: US-GLAXOSMITHKLINE-A1054298A

PATIENT
  Age: 73 Year
  Sex: Female

DRUGS (3)
  1. VENTOLIN [Suspect]
     Indication: PRODUCT USED FOR UNKNOWN INDICATION
     Dosage: 2PUFF FOUR TIMES PER DAY
     Route: 055
     Dates: start: 201212
  2. ANTIHYPERTENSIVE [Concomitant]
  3. THYROID [Concomitant]

REACTIONS (2)
  - Panic reaction [Unknown]
  - Dyspnoea [Unknown]
